FAERS Safety Report 8259786-0 (Version None)
Quarter: 2012Q2

REPORT INFORMATION
  Report Type: 
  Country: None (occurrence: None)
  Receive Date: 20120404
  Receipt Date: 20120402
  Transmission Date: 20120825
  Serious: Yes (Hospitalization, Other)
  Sender: FDA-Public Use
  Company Number: JP-ABBOTT-12P-087-0917530-00

PATIENT
  Age: 50 Year
  Sex: Male
  Weight: 73 kg

DRUGS (10)
  1. AMBISOME [Suspect]
     Indication: BLOOD BETA-D-GLUCAN INCREASED
  2. PREZISTA [Concomitant]
     Indication: HIV INFECTION
  3. URIEF [Concomitant]
     Indication: PRODUCT USED FOR UNKNOWN INDICATION
  4. AMBISOME [Suspect]
     Indication: ASPERGILLUS TEST
  5. TRUVADA [Concomitant]
     Indication: HIV INFECTION
  6. NORVIR [Suspect]
     Indication: HIV INFECTION
  7. PREDNISOLONE [Concomitant]
     Indication: PRODUCT USED FOR UNKNOWN INDICATION
  8. FAMOTIDINE [Concomitant]
     Indication: PRODUCT USED FOR UNKNOWN INDICATION
  9. AMBISOME [Suspect]
     Indication: CYTOMEGALOVIRUS TEST POSITIVE
     Dosage: 2.5 MG/KG DAILY OVER 1.5 HOURS
     Route: 041
  10. BACTA COMPOUND [Concomitant]
     Indication: PRODUCT USED FOR UNKNOWN INDICATION

REACTIONS (3)
  - VOMITING [None]
  - NAUSEA [None]
  - DECREASED APPETITE [None]
